FAERS Safety Report 10008000 (Version 1)
Quarter: 2014Q1

REPORT INFORMATION
  Report Type: Spontaneous
  Country: CO (occurrence: CO)
  Receive Date: 20140313
  Receipt Date: 20140313
  Transmission Date: 20141002
  Serious: Yes (Death, Hospitalization)
  Sender: FDA-Public Use
  Company Number: CO-PFIZER INC-2014073258

PATIENT
  Age: 92 Year
  Sex: Female

DRUGS (2)
  1. ZOLOF [Suspect]
     Indication: ANXIETY
     Dosage: 100 MG, 1X/DAY
     Route: 048
  2. LIPITOR [Suspect]
     Dosage: 20 MG, 1X/DAY
     Route: 048

REACTIONS (3)
  - Cardiac failure [Fatal]
  - Cardiac procedure complication [Fatal]
  - Cardiac disorder [Not Recovered/Not Resolved]
